FAERS Safety Report 21275073 (Version 1)
Quarter: 2022Q3

REPORT INFORMATION
  Report Type: Spontaneous
  Country: US (occurrence: US)
  Receive Date: 20220831
  Receipt Date: 20220831
  Transmission Date: 20221026
  Serious: No
  Sender: FDA-Public Use
  Company Number: US-PHARMING-PHAUS2022000584

PATIENT

DRUGS (2)
  1. RUCONEST [Suspect]
     Active Substance: HUMAN C1-ESTERASE INHIBITOR
     Indication: Angioedema
     Dosage: 4200 IU, AS NEEDED
     Route: 042
     Dates: start: 20211008
  2. ZYRTEC                             /00884302/ [Concomitant]
     Indication: Hereditary angioedema

REACTIONS (1)
  - Product use in unapproved indication [Unknown]
